FAERS Safety Report 8201525-3 (Version None)
Quarter: 2012Q1

REPORT INFORMATION
  Report Type: 
  Country: None (occurrence: None)
  Receive Date: 20120312
  Receipt Date: 20120306
  Transmission Date: 20120608
  Serious: Yes (Other)
  Sender: FDA-Public Use
  Company Number: GR-GLAXOSMITHKLINE-B0765317A

PATIENT
  Age: 30 Year
  Sex: Female

DRUGS (1)
  1. VOTRIENT [Suspect]
     Indication: ENDOMETRIAL SARCOMA
     Route: 065

REACTIONS (2)
  - PERICARDIAL EFFUSION [None]
  - DIARRHOEA [None]
